FAERS Safety Report 10129763 (Version 1)
Quarter: 2014Q2

REPORT INFORMATION
  Report Type: Spontaneous
  Country: GB (occurrence: None)
  Receive Date: 20140424
  Receipt Date: 20140424
  Transmission Date: 20141212
  Serious: Yes (Hospitalization)
  Sender: FDA-Public Use
  Company Number: ABR_01593_2014

PATIENT
  Sex: Male

DRUGS (1)
  1. GLYCERYL TRINITRATE [Suspect]
     Indication: CHEST PAIN
     Route: 060
     Dates: start: 201401, end: 201401

REACTIONS (11)
  - Headache [None]
  - Nausea [None]
  - Vision blurred [None]
  - Hypoacusis [None]
  - Cold sweat [None]
  - Loss of consciousness [None]
  - Incoherent [None]
  - Cold sweat [None]
  - Product quality issue [None]
  - Drug ineffective [None]
  - Dizziness [None]
